FAERS Safety Report 10271810 (Version 2)
Quarter: 2014Q3

REPORT INFORMATION
  Report Type: Spontaneous
  Country: DE (occurrence: DE)
  Receive Date: 20140701
  Receipt Date: 20140722
  Transmission Date: 20150326
  Serious: Yes (Death, Life-Threatening, Other)
  Sender: FDA-Public Use
  Company Number: DE-009507513-1406DEU013798

PATIENT
  Age: 31 Year
  Sex: Female

DRUGS (4)
  1. ORGARAN [Suspect]
     Active Substance: DANAPAROID SODIUM
     Indication: ANTICOAGULANT THERAPY
     Dosage: UNK
     Route: 058
     Dates: start: 20120628, end: 20120628
  2. NOVAMINSULFON [Concomitant]
     Active Substance: METAMIZOLE
     Indication: HEADACHE
     Dosage: UNK
     Dates: start: 20120624, end: 201206
  3. MONO EMBOLEX [Concomitant]
     Indication: THROMBOSIS PROPHYLAXIS
     Dosage: 3000 ONCE DAILY
     Dates: start: 20120625, end: 20120626
  4. ORGARAN [Suspect]
     Active Substance: DANAPAROID SODIUM
     Indication: HEPARIN-INDUCED THROMBOCYTOPENIA
     Dosage: 100 IU/HOURS
     Route: 058
     Dates: start: 20120628, end: 20120630

REACTIONS (8)
  - Craniotomy [Fatal]
  - Blood product transfusion [Fatal]
  - Packed red blood cell transfusion [Fatal]
  - Intracranial venous sinus thrombosis [Fatal]
  - Drug ineffective [Fatal]
  - Brain injury [Fatal]
  - Cerebral haemorrhage [Fatal]
  - Platelet transfusion [Fatal]

NARRATIVE: CASE EVENT DATE: 2012
